FAERS Safety Report 10210310 (Version 1)
Quarter: 2014Q2

REPORT INFORMATION
  Report Type: Spontaneous
  Country: US (occurrence: None)
  Receive Date: 20140529
  Receipt Date: 20140529
  Transmission Date: 20141212
  Serious: Yes (Hospitalization)
  Sender: FDA-Public Use
  Company Number: None

PATIENT
  Age: 58 Year
  Sex: Male
  Weight: 115 kg

DRUGS (22)
  1. OXYCONTIN [Suspect]
     Indication: PAIN
     Dosage: 1 TABLET EVERY 12 HOURS ORAL
     Route: 048
     Dates: start: 20140401, end: 20140408
  2. MORPHINE [Suspect]
     Indication: PAIN
     Dosage: CONTINUOUS INFUSION CONTINUOUS INTRATHECAL
     Route: 037
     Dates: start: 20140401, end: 20140409
  3. BUPIVACAINE [Suspect]
     Indication: PAIN
     Route: 037
     Dates: start: 20140401, end: 20140409
  4. HYDROMORPHONE [Suspect]
     Indication: PAIN
     Route: 037
     Dates: start: 20140401, end: 20140409
  5. CARVEDILOL [Concomitant]
  6. ASPIRIN [Concomitant]
  7. CYMBALTA [Concomitant]
  8. METHADONE [Concomitant]
  9. OYCONTIN [Concomitant]
  10. NORTRIPTYLINE [Concomitant]
  11. DIAZEPAM [Concomitant]
  12. ABUTEROL SULFATE [Concomitant]
  13. TRIAMTERENE/HCTZ [Concomitant]
  14. GABAPENTIN [Concomitant]
  15. MIRALAX [Concomitant]
  16. ABILIFY [Concomitant]
  17. FLOMAX [Concomitant]
  18. LANTUS SOLOSTAR PEN [Concomitant]
  19. SIMVASTATIN [Concomitant]
  20. GLIPIZIDE [Concomitant]
  21. FUROSEMIDE [Concomitant]
  22. METFORMIN [Concomitant]

REACTIONS (5)
  - Cellulitis [None]
  - Treatment failure [None]
  - Somnolence [None]
  - Blood pH decreased [None]
  - Blood gases abnormal [None]
